FAERS Safety Report 8426825-3 (Version None)
Quarter: 2012Q2

REPORT INFORMATION
  Report Type: 
  Country: None (occurrence: None)
  Receive Date: 20120611
  Receipt Date: 20120601
  Transmission Date: 20120825
  Serious: Yes (Hospitalization)
  Sender: FDA-Public Use
  Company Number: US-ABBOTT-12P-163-0942318-00

PATIENT
  Sex: Female
  Weight: 68.1 kg

DRUGS (5)
  1. HUMIRA [Suspect]
     Dates: start: 20110801, end: 20120101
  2. HUMIRA [Suspect]
     Indication: PSORIASIS
     Dates: start: 20070101, end: 20100801
  3. UNNAMED SUPPLEMENTS [Concomitant]
     Indication: PRODUCT USED FOR UNKNOWN INDICATION
  4. HUMIRA [Suspect]
     Dates: start: 20120201, end: 20120201
  5. OMEPRAZOLE [Concomitant]
     Indication: DYSPEPSIA

REACTIONS (4)
  - URINARY TRACT INFECTION [None]
  - PSORIASIS [None]
  - UPPER RESPIRATORY TRACT INFECTION [None]
  - OBESITY [None]
